FAERS Safety Report 7634237-5 (Version None)
Quarter: 2011Q3

REPORT INFORMATION
  Report Type: 
  Country: None (occurrence: None)
  Receive Date: 20110725
  Receipt Date: 20110719
  Transmission Date: 20111222
  Serious: Yes (Other)
  Sender: FDA-Public Use
  Company Number: US-BAYER-2011-063852

PATIENT
  Age: 70 Year
  Sex: Female

DRUGS (2)
  1. CITRACAL MAXIMUM [Suspect]
     Dosage: 2 DF, BID, BOTTLE COUNT 240S
     Route: 048
  2. THYROID THERAPY [Concomitant]

REACTIONS (1)
  - NEPHROLITHIASIS [None]
